FAERS Safety Report 10149835 (Version 1)
Quarter: 2014Q2

REPORT INFORMATION
  Report Type: Spontaneous
  Country: US (occurrence: None)
  Receive Date: 20140501
  Receipt Date: 20140501
  Transmission Date: 20141212
  Serious: Yes (Hospitalization)
  Sender: FDA-Public Use
  Company Number: None

PATIENT
  Age: 89 Year
  Sex: Male

DRUGS (13)
  1. WARFARIN [Suspect]
     Indication: ATRIAL FIBRILLATION
     Route: 048
     Dates: start: 20130830
  2. QUETIAPINE [Concomitant]
  3. ACETAMINOPHEN [Concomitant]
  4. AMIODARONE [Concomitant]
  5. ASPIRIN [Concomitant]
  6. FLUTICASONE [Concomitant]
  7. METOPROLOL SUCCINATE [Concomitant]
  8. TRIAMCINOLONE CREAM [Concomitant]
  9. VITAMIN D [Concomitant]
  10. NYSTATIN [Concomitant]
  11. NALTREXONE [Concomitant]
  12. MELATONIN [Concomitant]
  13. ISOSORBIDE MONONITRATE [Concomitant]

REACTIONS (4)
  - Extradural haematoma [None]
  - Fall [None]
  - Laceration [None]
  - Confusional state [None]
